FAERS Safety Report 12426950 (Version 1)
Quarter: 2016Q2

REPORT INFORMATION
  Report Type: Spontaneous
  Country: CH (occurrence: CH)
  Receive Date: 20160601
  Receipt Date: 20160601
  Transmission Date: 20160815
  Serious: Yes (Hospitalization, Other)
  Sender: FDA-Public Use
  Company Number: CH-CORDEN PHARMA LATINA S.P.A.-CH-2016COR000160

PATIENT
  Age: 71 Year
  Sex: Male

DRUGS (2)
  1. ONDANSETRON [Concomitant]
     Active Substance: ONDANSETRON
     Indication: PROPHYLAXIS
     Dosage: UNK
  2. LOMUSTINE. [Suspect]
     Active Substance: LOMUSTINE
     Indication: GLIOBLASTOMA
     Dosage: 200 MG, DAILY

REACTIONS (12)
  - Platelet count decreased [Not Recovered/Not Resolved]
  - Muscle spasms [Not Recovered/Not Resolved]
  - Sensorimotor disorder [Unknown]
  - C-reactive protein increased [Not Recovered/Not Resolved]
  - Neuropsychiatric syndrome [Unknown]
  - Haemoglobin decreased [Recovered/Resolved]
  - Amnesia [Unknown]
  - Accidental overdose [Unknown]
  - Bone marrow failure [Not Recovered/Not Resolved]
  - Staphylococcal infection [Unknown]
  - Abdominal pain [Not Recovered/Not Resolved]
  - White blood cell count decreased [Recovered/Resolved]
